FAERS Safety Report 4908930-9 (Version None)
Quarter: 2006Q1

REPORT INFORMATION
  Report Type: 
  Country: None (occurrence: None)
  Receive Date: 20060209
  Receipt Date: 20060131
  Transmission Date: 20060701
  Serious: Yes (Hospitalization)
  Sender: FDA-Public Use
  Company Number: 2005BI022021

PATIENT
  Age: 48 Year
  Sex: Female

DRUGS (1)
  1. AVONEX [Suspect]
     Indication: MULTIPLE SCLEROSIS
     Dosage: IM
     Route: 030
     Dates: start: 20010101

REACTIONS (5)
  - BREAST COSMETIC SURGERY [None]
  - BREAST MASS [None]
  - POSTOPERATIVE INFECTION [None]
  - SCAR [None]
  - STAPHYLOCOCCAL INFECTION [None]
